FAERS Safety Report 9458288 (Version 7)
Quarter: 2015Q1

REPORT INFORMATION
  Report Type: Report from Study
  Country: CA (occurrence: CA)
  Receive Date: 20130814
  Receipt Date: 20150112
  Transmission Date: 20150721
  Serious: Yes (Hospitalization)
  Sender: FDA-Public Use
  Company Number: CA-ROCHE-1255312

PATIENT
  Age: 60 Year
  Sex: Male
  Weight: 87.5 kg

DRUGS (17)
  1. DOXORUBICIN [Suspect]
     Active Substance: DOXORUBICIN
     Indication: DIFFUSE LARGE B-CELL LYMPHOMA
     Dosage: MOST RECENT DOSE DOXORUBICIN 108 MG WAS RECEIVED PRIOR TO SAE ON 12/JUL/2013.
     Route: 042
     Dates: start: 20130621
  2. SENOKOT [Concomitant]
     Active Substance: SENNOSIDES
     Indication: CONSTIPATION
     Dosage: DOSE:1-2 TABS PRN
     Route: 048
     Dates: start: 20130619, end: 20130805
  3. COLACE [Concomitant]
     Active Substance: DOCUSATE SODIUM
     Indication: CONSTIPATION
     Dosage: DOSE: 1 TAB HS
     Route: 048
     Dates: start: 20130520, end: 20130805
  4. HYDROMORPHONE [Concomitant]
     Active Substance: HYDROMORPHONE
     Indication: PAIN
     Route: 048
     Dates: start: 20130619, end: 20130628
  5. TYLENOL [Concomitant]
     Active Substance: ACETAMINOPHEN
     Indication: PAIN
     Dosage: 1-2 TABS  PRN
     Route: 048
     Dates: start: 20130627, end: 20130906
  6. GABAPENTIN. [Concomitant]
     Active Substance: GABAPENTIN
     Indication: PAIN
     Route: 048
     Dates: start: 20130702, end: 20130805
  7. FENTANYL TRANSDERMAL SYSTEM [Concomitant]
     Active Substance: FENTANYL
     Indication: PAIN
     Dosage: 25-90 MCG
     Route: 065
     Dates: start: 20130718, end: 20130805
  8. CIPROFLOXACIN. [Concomitant]
     Active Substance: CIPROFLOXACIN
     Indication: FEBRILE NEUTROPENIA
     Dosage: FOR 5 DAYS
     Route: 048
     Dates: start: 20130725, end: 20130730
  9. DEXAMETHASONE. [Concomitant]
     Active Substance: DEXAMETHASONE
     Indication: PROPHYLAXIS OF NAUSEA AND VOMITING
     Route: 065
     Dates: start: 20130620, end: 20131027
  10. CYCLOPHOSPHAMIDE. [Suspect]
     Active Substance: CYCLOPHOSPHAMIDE
     Indication: DIFFUSE LARGE B-CELL LYMPHOMA
     Dosage: MOST RECENT DOSE OF CYCLOPHOSPHAMIDE 1620 MG WAS RECEIVED PRIOR TO SAE ON 12/JUL/2013.
     Route: 042
     Dates: start: 20130621
  11. PREDNISOLONE. [Suspect]
     Active Substance: PREDNISOLONE
     Indication: DIFFUSE LARGE B-CELL LYMPHOMA
     Dosage: MOST RECENT DOSE PREDNISOLONE 100 MG WAS RECEIVED PRIOR TO SAE ON 16/JUL/2013.
     Route: 048
     Dates: start: 20130620
  12. ONDANSETRON [Concomitant]
     Active Substance: ONDANSETRON
     Indication: PROPHYLAXIS OF NAUSEA AND VOMITING
     Route: 065
     Dates: start: 20130620, end: 20131025
  13. RITUXIMAB [Suspect]
     Active Substance: RITUXIMAB
     Indication: DIFFUSE LARGE B-CELL LYMPHOMA
     Dosage: MOST RECENT DOSE OF RITUXIMAB AT 10 MG/ML AND VOLUME 250 ML WAS RECEIVED PRIOR TO SAE ON 12/JUL/2013
     Route: 042
     Dates: start: 20130620
  14. AMOXICILLIN/CLAVULANATE [Concomitant]
     Active Substance: AMOXICILLIN\CLAVULANATE POTASSIUM
     Indication: INFECTION PROPHYLAXIS
     Route: 065
     Dates: start: 20130725, end: 20130730
  15. VINCRISTINE [Suspect]
     Active Substance: VINCRISTINE
     Indication: DIFFUSE LARGE B-CELL LYMPHOMA
     Dosage: MOST RECENT DOSE OF VINCRISTINE 3 MG WAS RECECIVED PRIOR TO SAE ON 12/JUL/2013.
     Route: 040
     Dates: start: 20130620
  16. MOTRIN [Concomitant]
     Active Substance: IBUPROFEN
     Indication: PAIN
     Dosage: DOSE-1-2 TABS
     Route: 048
     Dates: start: 20130520, end: 20131116
  17. HYDROMORPHONE [Concomitant]
     Active Substance: HYDROMORPHONE
     Dosage: DOSE:2-4 MG PRN
     Route: 065
     Dates: start: 20130619, end: 20130801

REACTIONS (2)
  - Neutropenia [Recovered/Resolved]
  - Cholecystitis [Recovered/Resolved]

NARRATIVE: CASE EVENT DATE: 20130724
